FAERS Safety Report 6734691-7 (Version None)
Quarter: 2010Q2

REPORT INFORMATION
  Report Type: 
  Country: None (occurrence: None)
  Receive Date: 20100519
  Receipt Date: 20100519
  Transmission Date: 20101027
  Serious: No
  Sender: FDA-Public Use
  Company Number: None

PATIENT
  Age: 77 Year
  Sex: Male
  Weight: 69.04 kg

DRUGS (2)
  1. ROSUVASTATIN [Suspect]
     Indication: CORONARY ARTERY DISEASE
     Dosage: 2.5 MG EVERY DAY PO
     Route: 048
     Dates: start: 20100408, end: 20100506
  2. ROSUVASTATIN [Suspect]
     Indication: HYPERLIPIDAEMIA
     Dosage: 2.5 MG EVERY DAY PO
     Route: 048
     Dates: start: 20100408, end: 20100506

REACTIONS (3)
  - JOINT SWELLING [None]
  - SKIN NODULE [None]
  - TENDON DISORDER [None]
